FAERS Safety Report 8830755 (Version 2)
Quarter: 2012Q4

REPORT INFORMATION
  Report Type: 
  Country: PE (occurrence: PE)
  Receive Date: 20121009
  Receipt Date: 20121016
  Transmission Date: 20130627
  Serious: Yes (Death, Other)
  Sender: FDA-Public Use
  Company Number: PE-PFIZER INC-2012246375

PATIENT
  Age: 75 Year
  Sex: Female

DRUGS (3)
  1. XALATAN [Suspect]
     Indication: GLAUCOMA
     Dosage: UNK
     Route: 047
  2. GLUCOPHAGE [Concomitant]
     Route: 048
  3. ENALAPRIL [Concomitant]
     Route: 048

REACTIONS (2)
  - Intestinal obstruction [Fatal]
  - Lower limb fracture [Not Recovered/Not Resolved]
